FAERS Safety Report 4982979-2 (Version None)
Quarter: 2006Q2

REPORT INFORMATION
  Report Type: 
  Country: None (occurrence: None)
  Receive Date: 20060426
  Receipt Date: 20060414
  Transmission Date: 20061013
  Serious: Yes (Other)
  Sender: FDA-Public Use
  Company Number: US-JNJFOC-20060305740

PATIENT
  Sex: Female
  Weight: 64.86 kg

DRUGS (15)
  1. REMICADE [Suspect]
     Route: 042
  2. REMICADE [Suspect]
     Indication: RHEUMATOID ARTHRITIS
     Route: 042
  3. METHOTREXATE [Concomitant]
  4. ZOCOR [Concomitant]
  5. PREMARIN [Concomitant]
  6. CELEBREX [Concomitant]
  7. ACTONEL [Concomitant]
  8. ASCORBIC ACID [Concomitant]
  9. CALTRATE [Concomitant]
  10. MULTIVITE [Concomitant]
  11. MULTIVITE [Concomitant]
  12. MULTIVITE [Concomitant]
  13. MULTIVITE [Concomitant]
  14. MULTIVITE [Concomitant]
  15. MULTIVITE [Concomitant]

REACTIONS (2)
  - GALLBLADDER CANCER [None]
  - METASTATIC NEOPLASM [None]
